FAERS Safety Report 22268000 (Version 4)
Quarter: 2023Q2

REPORT INFORMATION
  Report Type: Report from Study
  Country: US (occurrence: US)
  Receive Date: 20230430
  Receipt Date: 20230523
  Transmission Date: 20230722
  Serious: No
  Sender: FDA-Public Use
  Company Number: US-002147023-NVSC2023US096470

PATIENT
  Sex: Female

DRUGS (1)
  1. ENTRESTO [Suspect]
     Active Substance: SACUBITRIL\VALSARTAN
     Indication: Product used for unknown indication
     Dosage: 1 DOSAGE FORM, BID
     Route: 065

REACTIONS (6)
  - Laryngitis allergic [Unknown]
  - Rhinorrhoea [Unknown]
  - Cough [Unknown]
  - Chest discomfort [Unknown]
  - Dyspnoea [Unknown]
  - Sluggishness [Unknown]
